FAERS Safety Report 7895948-X (Version None)
Quarter: 2011Q4

REPORT INFORMATION
  Report Type: 
  Country: None (occurrence: None)
  Receive Date: 20111106
  Receipt Date: 20110901
  Transmission Date: 20120403
  Serious: No
  Sender: FDA-Public Use
  Company Number: US-AMGEN-USASP2011045018

PATIENT
  Age: 55 Year
  Sex: Female

DRUGS (1)
  1. ENBREL [Suspect]
     Indication: PSORIATIC ARTHROPATHY
     Dosage: 50 MG, 2 TIMES/WK
     Dates: start: 20110608

REACTIONS (5)
  - MUSCULAR WEAKNESS [None]
  - VOMITING [None]
  - OEDEMA PERIPHERAL [None]
  - DIARRHOEA [None]
  - PSORIATIC ARTHROPATHY [None]
